FAERS Safety Report 4716803-X (Version None)
Quarter: 2005Q3

REPORT INFORMATION
  Report Type: 
  Country: None (occurrence: None)
  Receive Date: 20050714
  Receipt Date: 20050707
  Transmission Date: 20060218
  Serious: Yes (Other)
  Sender: FDA-Public Use
  Company Number: 6015908F

PATIENT
  Sex: Male

DRUGS (4)
  1. NIASPAN [Suspect]
     Indication: HIGH DENSITY LIPOPROTEIN DECREASED
     Dosage: 500 MG QD PO
     Route: 048
     Dates: start: 20050512
  2. ASPIRIN [Concomitant]
  3. TESTOSTERONE HEXAHYDROBENZOATE [Concomitant]
  4. ATORVASTATIN CALCIUM [Concomitant]

REACTIONS (6)
  - BLOOD PRESSURE IMMEASURABLE [None]
  - BURNING SENSATION [None]
  - FALL [None]
  - FLUSHING [None]
  - PULSE ABSENT [None]
  - SYNCOPE [None]
